FAERS Safety Report 24606389 (Version 1)
Quarter: 2024Q4

REPORT INFORMATION
  Report Type: Spontaneous
  Country: US (occurrence: US)
  Receive Date: 20241112
  Receipt Date: 20241112
  Transmission Date: 20250114
  Serious: No
  Sender: SANOFI AVENTIS
  Company Number: US-SA-2024SA319128

PATIENT
  Age: 30 Year
  Sex: Male

DRUGS (5)
  1. DUPIXENT [Suspect]
     Active Substance: DUPILUMAB
     Indication: Dermatitis atopic
     Dosage: 300 MG, QOW
     Route: 058
  2. DUPIXENT [Suspect]
     Active Substance: DUPILUMAB
     Indication: Hypersensitivity
  3. DUPIXENT [Suspect]
     Active Substance: DUPILUMAB
     Indication: Food allergy
  4. DUPIXENT [Suspect]
     Active Substance: DUPILUMAB
     Indication: Dysphagia
  5. DUPIXENT [Suspect]
     Active Substance: DUPILUMAB
     Indication: Eczema

REACTIONS (6)
  - Illness [Unknown]
  - Respiratory symptom [Unknown]
  - COVID-19 [Unknown]
  - Nasopharyngitis [Unknown]
  - Insomnia [Unknown]
  - Product use in unapproved indication [Unknown]
